FAERS Safety Report 7433591-7 (Version None)
Quarter: 2011Q2

REPORT INFORMATION
  Report Type: 
  Country: None (occurrence: None)
  Receive Date: 20110422
  Receipt Date: 20110419
  Transmission Date: 20111010
  Serious: No
  Sender: FDA-Public Use
  Company Number: US-B.I. PHARMACEUTICALS,INC./RIDGEFIELD-2011-BP-11242BP

PATIENT
  Sex: Male

DRUGS (4)
  1. ATENOLOL [Concomitant]
     Indication: CARDIAC DISORDER
     Dosage: 25 MG
  2. DILTIAZEM [Concomitant]
     Indication: BLOOD CHOLESTEROL INCREASED
     Dosage: 300 MG
  3. SIMVASTATIN [Concomitant]
     Indication: BLOOD CHOLESTEROL INCREASED
     Dosage: 40 MG
  4. PRADAXA [Suspect]
     Indication: ATRIAL FIBRILLATION
     Dosage: 300 MG
     Route: 048
     Dates: start: 20110415

REACTIONS (1)
  - PAIN IN EXTREMITY [None]
